FAERS Safety Report 9711133 (Version 2)
Quarter: 2013Q4

REPORT INFORMATION
  Report Type: Spontaneous
  Country: US (occurrence: US)
  Receive Date: 20131126
  Receipt Date: 20131126
  Transmission Date: 20140711
  Serious: No
  Sender: FDA-Public Use
  Company Number: US-BRISTOL-MYERS SQUIBB COMPANY-19156017

PATIENT
  Age: 69 Year
  Sex: Female
  Weight: 74.83 kg

DRUGS (6)
  1. BYDUREON [Suspect]
     Indication: TYPE 2 DIABETES MELLITUS
     Dosage: NO OF INJECTIONS:3
     Route: 058
     Dates: start: 2006
  2. BYETTA [Suspect]
     Dates: start: 2006
  3. NOVOLOG [Concomitant]
     Dates: end: 2011
  4. VICTOZA [Concomitant]
  5. METFORMIN [Concomitant]
     Dosage: 1DF:2000 UNIT NOS
  6. GLIMEPIRIDE [Concomitant]
     Dosage: 1DF:2TABS

REACTIONS (4)
  - Injection site nodule [Unknown]
  - Injection site extravasation [Unknown]
  - Diarrhoea [Unknown]
  - Weight decreased [Recovered/Resolved]
